FAERS Safety Report 4486344-6 (Version None)
Quarter: 2004Q4

REPORT INFORMATION
  Report Type: 
  Country: None (occurrence: None)
  Receive Date: 20041022
  Receipt Date: 20041008
  Transmission Date: 20050328
  Serious: Yes (Hospitalization, Other)
  Sender: FDA-Public Use
  Company Number: 2004S1002563

PATIENT
  Age: 77 Year
  Sex: Female

DRUGS (3)
  1. ALLOPURINOL [Suspect]
     Indication: GOUT
     Dosage: ORAL
     Route: 048
     Dates: start: 20030201, end: 20030801
  2. PRENDISONE TABLETS 20 MG WATSON [Suspect]
  3. UNKNOWN HEART MEDICATIONS [Concomitant]

REACTIONS (3)
  - LOGORRHOEA [None]
  - MANIA [None]
  - MEDICATION ERROR [None]
